FAERS Safety Report 18991949 (Version 2)
Quarter: 2021Q2

REPORT INFORMATION
  Report Type: Spontaneous
  Country: AR (occurrence: AR)
  Receive Date: 20210310
  Receipt Date: 20210505
  Transmission Date: 20210717
  Serious: Yes (Hospitalization)
  Sender: FDA-Public Use
  Company Number: AR-PFIZER INC-2021229376

PATIENT
  Age: 62 Year
  Sex: Female
  Weight: 66 kg

DRUGS (5)
  1. ULCOZOL [OMEPRAZOLE] [Concomitant]
     Dosage: 20 MG, DAILY
     Dates: start: 200801
  2. ALDACTONE A [Concomitant]
     Active Substance: SPIRONOLACTONE
     Dosage: 100 MG, DAILY
     Dates: start: 2018
  3. LASIX [Concomitant]
     Active Substance: FUROSEMIDE
     Dosage: 40 MG, DAILY (INTERMITTENT PERIODS)
     Dates: start: 2018
  4. IBRANCE [Suspect]
     Active Substance: PALBOCICLIB
     Indication: BREAST CANCER METASTATIC
     Dosage: 125 MG, CYCLIC (DAILY 3X1 SCHEME)
     Route: 048
     Dates: start: 20190405, end: 202102
  5. ACIMED [Concomitant]
     Dosage: 20 MG, DAILY
     Dates: start: 2018

REACTIONS (8)
  - Dehydration [Unknown]
  - Ascites [Unknown]
  - Contusion [Unknown]
  - Pain in extremity [Unknown]
  - Tumour marker abnormal [Unknown]
  - Diarrhoea [Unknown]
  - Abdominal pain [Unknown]
  - Post procedural discharge [Unknown]

NARRATIVE: CASE EVENT DATE: 202102
